FAERS Safety Report 6841291-7 (Version None)
Quarter: 2010Q3

REPORT INFORMATION
  Report Type: 
  Country: None (occurrence: None)
  Receive Date: 20100714
  Receipt Date: 20070821
  Transmission Date: 20110219
  Serious: No
  Sender: FDA-Public Use
  Company Number: US-PFIZER INC-2007051371

PATIENT
  Sex: Male
  Weight: 90.909 kg

DRUGS (2)
  1. CHANTIX [Suspect]
     Indication: SMOKING CESSATION THERAPY
     Route: 048
     Dates: start: 20070427
  2. VITAMINS [Concomitant]

REACTIONS (4)
  - DRUG EFFECT DECREASED [None]
  - FEELING ABNORMAL [None]
  - IRRITABILITY [None]
  - MENTAL DISORDER [None]
